FAERS Safety Report 9400817 (Version 1)
Quarter: 2013Q3

REPORT INFORMATION
  Report Type: Spontaneous
  Country: US (occurrence: None)
  Receive Date: 20130712
  Receipt Date: 20130712
  Transmission Date: 20140515
  Serious: Yes (Other)
  Sender: FDA-Public Use
  Company Number: None

PATIENT
  Age: 69 None
  Sex: Female
  Weight: 97.52 kg

DRUGS (1)
  1. ANTARA [Suspect]
     Indication: BLOOD TRIGLYCERIDES INCREASED
     Dates: start: 20130520, end: 20130528

REACTIONS (9)
  - Hypersensitivity [None]
  - Urticaria [None]
  - Local swelling [None]
  - Swelling face [None]
  - Local swelling [None]
  - Hypoaesthesia [None]
  - Chromaturia [None]
  - Paralysis [None]
  - Arthropathy [None]
